FAERS Safety Report 11386150 (Version 1)
Quarter: 2015Q3

REPORT INFORMATION
  Report Type: Spontaneous
  Country: US (occurrence: None)
  Receive Date: 20150813
  Receipt Date: 20150813
  Transmission Date: 20151125
  Serious: Yes (Hospitalization)
  Sender: FDA-Public Use
  Company Number: None

PATIENT
  Age: 81 Year
  Sex: Male

DRUGS (18)
  1. METOPROLOL TARTRATE (LOPRESSOR) [Concomitant]
  2. ACETAMINOPHEN-CODEINE (TYLENOL #4) [Concomitant]
  3. PREDNISONE (DELTASONE) [Concomitant]
  4. DOXYCYCLINE MONOHYDRATE (AVIDOXY) [Concomitant]
  5. PRAVACHOL [Concomitant]
     Active Substance: PRAVASTATIN SODIUM
  6. ZAROXOLYN [Concomitant]
     Active Substance: METOLAZONE
  7. EPOETIN (PROCRIT) [Concomitant]
  8. CALCIUM CARBONATE-VIT D3 (CALCIUM WITH VITAMIN D) [Concomitant]
  9. WARFARIN (COUMADIN) [Concomitant]
  10. LASIX [Concomitant]
     Active Substance: FUROSEMIDE
  11. TRACLEER [Suspect]
     Active Substance: BOSENTAN
     Indication: PULMONARY ARTERIAL HYPERTENSION
     Route: 048
     Dates: start: 201411
  12. TRAZODONE (DESYREL) [Concomitant]
  13. LEVOTHYROXINE (LEVOTHROID/SYNTHROID) [Concomitant]
  14. FERROUS SULFATE (65 MG IRON) [Concomitant]
  15. OMEPRAZOLE (PRILOSEC) [Concomitant]
  16. FLOMAX [Concomitant]
     Active Substance: TAMSULOSIN HYDROCHLORIDE
  17. GABAPENTIN (NEURONTIN) [Concomitant]
  18. ASPIRIN. [Concomitant]
     Active Substance: ASPIRIN

REACTIONS (2)
  - Syncope [None]
  - Cardiac failure congestive [None]

NARRATIVE: CASE EVENT DATE: 20150730
